FAERS Safety Report 8279924-3 (Version None)
Quarter: 2012Q2

REPORT INFORMATION
  Report Type: 
  Country: None (occurrence: None)
  Receive Date: 20120412
  Receipt Date: 20120409
  Transmission Date: 20120825
  Serious: No
  Sender: FDA-Public Use
  Company Number: US-PFIZER INC-2012068401

PATIENT
  Sex: Female
  Weight: 83.9 kg

DRUGS (4)
  1. EFFEXOR [Concomitant]
     Indication: DEPRESSION
     Dosage: 150 MG, DAILY
  2. ATENOLOL [Concomitant]
     Indication: HYPERTENSION
     Dosage: 25 MG, DAILY
  3. CELEBREX [Suspect]
     Indication: OSTEOARTHRITIS
     Dosage: 200 MG, DAILY
     Route: 048
  4. CELEBREX [Suspect]
     Dosage: 200 MG, WEEKLY
     Route: 048
     Dates: start: 20111201

REACTIONS (2)
  - DRUG ADMINISTRATION ERROR [None]
  - ARTHRALGIA [None]
